FAERS Safety Report 5075802-1 (Version None)
Quarter: 2006Q3

REPORT INFORMATION
  Report Type: 
  Country: None (occurrence: None)
  Receive Date: 20060809
  Receipt Date: 20060807
  Transmission Date: 20061208
  Serious: Yes (Other)
  Sender: FDA-Public Use
  Company Number: 2006-07-0654

PATIENT
  Sex: Male

DRUGS (6)
  1. ZOFRAN [Suspect]
     Indication: VOMITING
     Route: 065
  2. TEMODAR [Suspect]
     Indication: BRAIN NEOPLASM
     Route: 048
  3. RADIATION THERAPY [Concomitant]
     Indication: BRAIN NEOPLASM
  4. KEPPRA [Concomitant]
  5. DILANTIN [Concomitant]
  6. DECADRON [Concomitant]

REACTIONS (5)
  - CONSTIPATION [None]
  - CONVULSION [None]
  - DRUG INEFFECTIVE [None]
  - FATIGUE [None]
  - NEOPLASM PROGRESSION [None]
